FAERS Safety Report 9272947 (Version 4)
Quarter: 2013Q4

REPORT INFORMATION
  Report Type: Spontaneous
  Country: US (occurrence: US)
  Receive Date: 20130506
  Receipt Date: 20131119
  Transmission Date: 20140711
  Serious: Yes (Other)
  Sender: FDA-Public Use
  Company Number: US-PFIZER INC-2013138886

PATIENT
  Age: 64 Year
  Sex: Female
  Weight: 73 kg

DRUGS (6)
  1. ATORVASTATIN CALCIUM [Suspect]
     Indication: TYPE IIA HYPERLIPIDAEMIA
     Dosage: 10 MG, DAILY
     Dates: start: 2012, end: 2012
  2. ATORVASTATIN CALCIUM [Suspect]
     Indication: BLOOD CHOLESTEROL ABNORMAL
  3. NORVASC [Interacting]
     Dosage: UNK
  4. LISINOPRIL [Interacting]
     Dosage: UNK
  5. METFORMIN HCL [Interacting]
     Dosage: UNK
  6. HYDROCHLOROTHIAZIDE [Concomitant]
     Indication: HYPERTENSION
     Dosage: UNK

REACTIONS (11)
  - Myocardial infarction [Unknown]
  - Anaphylactic reaction [Unknown]
  - Heart rate increased [Unknown]
  - Drug interaction [Unknown]
  - Weight decreased [Unknown]
  - Migraine [Unknown]
  - Muscle spasms [Recovered/Resolved]
  - Malaise [Recovered/Resolved]
  - Drug ineffective [Recovered/Resolved]
  - Pain in extremity [Unknown]
  - Insomnia [Unknown]
